FAERS Safety Report 5876401-1 (Version None)
Quarter: 2008Q3

REPORT INFORMATION
  Report Type: 
  Country: None (occurrence: None)
  Receive Date: 20080909
  Receipt Date: 20080909
  Transmission Date: 20090109
  Serious: Yes (Other)
  Sender: FDA-Public Use
  Company Number: None

PATIENT
  Age: 5 Year
  Sex: Female
  Weight: 18.1439 kg

DRUGS (1)
  1. VYVANSE [Suspect]
     Indication: ATTENTION DEFICIT/HYPERACTIVITY DISORDER
     Dosage: 30 MG 1/DAY PO
     Route: 048
     Dates: start: 20080729, end: 20080729

REACTIONS (19)
  - ABDOMINAL PAIN UPPER [None]
  - ABNORMAL BEHAVIOUR [None]
  - AGITATION [None]
  - ANOREXIA [None]
  - DIZZINESS [None]
  - DYSARTHRIA [None]
  - DYSPNOEA [None]
  - INSOMNIA [None]
  - MANIA [None]
  - MOVEMENT DISORDER [None]
  - MYALGIA [None]
  - NAUSEA [None]
  - PSYCHOMOTOR HYPERACTIVITY [None]
  - RESPIRATORY DISORDER [None]
  - SPEECH DISORDER [None]
  - THIRST [None]
  - TIC [None]
  - VISION BLURRED [None]
  - VOMITING [None]
